FAERS Safety Report 13354933 (Version 1)
Quarter: 2017Q1

REPORT INFORMATION
  Report Type: Spontaneous
  Country: US (occurrence: US)
  Receive Date: 20170321
  Receipt Date: 20170321
  Transmission Date: 20170429
  Serious: Yes (Death)
  Sender: FDA-Public Use
  Company Number: US-BEH-2017078952

PATIENT
  Sex: Female
  Weight: 74.83 kg

DRUGS (29)
  1. CLOBETASOL [Concomitant]
     Active Substance: CLOBETASOL
  2. VENTOLIN HFA [Concomitant]
     Active Substance: ALBUTEROL SULFATE
  3. METOPROLOL SUCCINATE. [Concomitant]
     Active Substance: METOPROLOL SUCCINATE
  4. DIPHENHYDRAMINE. [Concomitant]
     Active Substance: DIPHENHYDRAMINE
  5. ROPINIROLE. [Concomitant]
     Active Substance: ROPINIROLE
  6. GABAPENTIN. [Concomitant]
     Active Substance: GABAPENTIN
  7. IPRATROPIUM/ALBUTEROL [Concomitant]
     Active Substance: ALBUTEROL\IPRATROPIUM
  8. IBUPROFEN. [Concomitant]
     Active Substance: IBUPROFEN
  9. ZEMAIRA [Suspect]
     Active Substance: .ALPHA.1-PROTEINASE INHIBITOR HUMAN
     Indication: EMPHYSEMA
     Dosage: 60 MG/KG, QW
     Route: 042
     Dates: start: 20090224
  10. SODIUM CHLORIDE. [Concomitant]
     Active Substance: SODIUM CHLORIDE
  11. DOXYCYCLINE. [Concomitant]
     Active Substance: DOXYCYCLINE
  12. APREMILAST [Concomitant]
     Active Substance: APREMILAST
  13. JANUVIA [Concomitant]
     Active Substance: SITAGLIPTIN PHOSPHATE
  14. LANTUS [Concomitant]
     Active Substance: INSULIN GLARGINE
  15. METFORMIN [Concomitant]
     Active Substance: METFORMIN HYDROCHLORIDE
  16. ALBUTEROL                          /00139501/ [Concomitant]
     Active Substance: ALBUTEROL
  17. PAXIL [Concomitant]
     Active Substance: PAROXETINE HYDROCHLORIDE
  18. ZEMAIRA [Suspect]
     Active Substance: .ALPHA.1-PROTEINASE INHIBITOR HUMAN
     Dosage: UNK
     Route: 042
  19. EPIPEN [Concomitant]
     Active Substance: EPINEPHRINE
  20. ACETAMINOPHEN AND CODEINE [Concomitant]
     Active Substance: ACETAMINOPHEN\CODEINE PHOSPHATE
  21. CINNAMON                           /01647501/ [Concomitant]
     Active Substance: CINNAMON
  22. NEURONTIN [Concomitant]
     Active Substance: GABAPENTIN
  23. LIDOCAINE/PRILOCAINE [Concomitant]
     Active Substance: LIDOCAINE\PRILOCAINE
  24. PREDNISONE. [Concomitant]
     Active Substance: PREDNISONE
  25. STELARA [Concomitant]
     Active Substance: USTEKINUMAB
  26. CEPHALEXIN                         /00145501/ [Concomitant]
     Active Substance: CEPHALEXIN
  27. OXYGEN. [Concomitant]
     Active Substance: OXYGEN
  28. ENBREL [Concomitant]
     Active Substance: ETANERCEPT
  29. MUPIROCIN. [Concomitant]
     Active Substance: MUPIROCIN

REACTIONS (1)
  - Death [Fatal]
